FAERS Safety Report 17192530 (Version 2)
Quarter: 2020Q1

REPORT INFORMATION
  Report Type: Spontaneous
  Country: RU (occurrence: RU)
  Receive Date: 20191223
  Receipt Date: 20200102
  Transmission Date: 20200409
  Serious: Yes (Hospitalization)
  Sender: FDA-Public Use
  Company Number: RU-EMD SERONO-9128222

PATIENT
  Age: 31 Year
  Sex: Male

DRUGS (2)
  1. MAVENCLAD [Suspect]
     Active Substance: CLADRIBINE
     Dosage: SECOND COURSE THERAPY: ONE TABLET PER DAY FOR 7 DAYS.
     Route: 048
     Dates: start: 20191012, end: 20191019
  2. MAVENCLAD [Suspect]
     Active Substance: CLADRIBINE
     Indication: MULTIPLE SCLEROSIS
     Dosage: FIRST COURSE THERAPY: TWO TABLETS PER DAY ON 02 SEP AND 03 SEP 2019, THEN ONE TABLET PER DAY.
     Route: 048
     Dates: start: 20190902, end: 20190906

REACTIONS (3)
  - Product administration error [Unknown]
  - Stress [Recovering/Resolving]
  - Multiple sclerosis relapse [Recovered/Resolved]

NARRATIVE: CASE EVENT DATE: 201910
